FAERS Safety Report 6015271-8 (Version None)
Quarter: 2008Q4

REPORT INFORMATION
  Report Type: 
  Country: None (occurrence: None)
  Receive Date: 20081219
  Receipt Date: 20081219
  Transmission Date: 20090506
  Serious: No
  Sender: FDA-Public Use
  Company Number: None

PATIENT
  Age: 55 Year
  Sex: Male
  Weight: 90.7194 kg

DRUGS (1)
  1. BIAXIN [Suspect]
     Indication: HELICOBACTER INFECTION
     Dosage: 500 MG TWICE DAILY PO
     Route: 048
     Dates: start: 20081208, end: 20081211

REACTIONS (6)
  - BACK PAIN [None]
  - DRUG INEFFECTIVE [None]
  - HELICOBACTER INFECTION [None]
  - RENAL PAIN [None]
  - SLEEP DISORDER DUE TO GENERAL MEDICAL CONDITION, INSOMNIA TYPE [None]
  - ULCER [None]
